FAERS Safety Report 17219673 (Version 2)
Quarter: 2020Q1

REPORT INFORMATION
  Report Type: Spontaneous
  Country: CN (occurrence: CN)
  Receive Date: 20191231
  Receipt Date: 20200106
  Transmission Date: 20200409
  Serious: Yes (Death, Life-Threatening, Other)
  Sender: FDA-Public Use
  Company Number: CN-PFIZER INC-2019559119

PATIENT
  Age: 49 Year
  Sex: Female

DRUGS (4)
  1. PACLITAXEL. [Suspect]
     Active Substance: PACLITAXEL
     Indication: SMALL CELL CARCINOMA OF THE CERVIX
     Dosage: UNK, CYCLIC(TWO CYCLES)
     Dates: start: 20160817
  2. ETOPOSIDE. [Suspect]
     Active Substance: ETOPOSIDE
     Indication: SMALL CELL CARCINOMA OF THE CERVIX
     Dosage: UNK, CYCLIC(ONE CYCLE)
     Dates: start: 20160817
  3. NEDAPLATIN [Suspect]
     Active Substance: NEDAPLATIN
     Indication: SMALL CELL CARCINOMA OF THE CERVIX
     Dosage: UNK, CYCLIC
     Dates: start: 20160817
  4. CISPLATIN. [Suspect]
     Active Substance: CISPLATIN
     Indication: SMALL CELL CARCINOMA OF THE CERVIX
     Dosage: UNK, CYCLIC
     Dates: start: 20160817

REACTIONS (6)
  - Abdominal pain [Unknown]
  - Vomiting [Unknown]
  - Bone marrow failure [Unknown]
  - Toxicity to various agents [Unknown]
  - Fatigue [Unknown]
  - Nausea [Unknown]

NARRATIVE: CASE EVENT DATE: 2016
